FAERS Safety Report 19714634 (Version 1)
Quarter: 2021Q3

REPORT INFORMATION
  Report Type: Spontaneous
  Country: ES (occurrence: ES)
  Receive Date: 20210818
  Receipt Date: 20210818
  Transmission Date: 20211014
  Serious: Yes (Other)
  Sender: FDA-Public Use
  Company Number: ES-AUROBINDO-AUR-APL-2021-034969

PATIENT
  Sex: Male
  Weight: 64 kg

DRUGS (4)
  1. FLUCONAZOLE. [Suspect]
     Active Substance: FLUCONAZOLE
     Indication: PRODUCT USED FOR UNKNOWN INDICATION
     Dosage: UNK
     Route: 048
  2. LANTUS [Suspect]
     Active Substance: INSULIN GLARGINE
     Indication: LATENT AUTOIMMUNE DIABETES IN ADULTS
     Dosage: TWO TIMES A DAY (3 IU IN THE MORNING AND 1 IU AT NIGHT AROUND 9:30 PM BEFORE BEDTIME)
     Route: 058
     Dates: start: 2014
  3. TOUJEO [Concomitant]
     Active Substance: INSULIN GLARGINE
     Indication: LATENT AUTOIMMUNE DIABETES IN ADULTS
     Dosage: UNK
     Route: 058
  4. HUMALOG [Concomitant]
     Active Substance: INSULIN LISPRO
     Indication: LATENT AUTOIMMUNE DIABETES IN ADULTS
     Dosage: 7 INTERNATIONAL UNIT, 3 TIMES A DAY (IN MEALS)
     Route: 058

REACTIONS (12)
  - Condition aggravated [Not Recovered/Not Resolved]
  - Hypoglycaemia [Not Recovered/Not Resolved]
  - Multiple use of single-use product [Unknown]
  - Nervousness [Not Recovered/Not Resolved]
  - Inappropriate schedule of product administration [Unknown]
  - Abdominal discomfort [Not Recovered/Not Resolved]
  - Drug hypersensitivity [Not Recovered/Not Resolved]
  - Stress [Not Recovered/Not Resolved]
  - Diabetes mellitus inadequate control [Not Recovered/Not Resolved]
  - Device operational issue [Not Recovered/Not Resolved]
  - Malabsorption [Not Recovered/Not Resolved]
  - Gluten sensitivity [Not Recovered/Not Resolved]

NARRATIVE: CASE EVENT DATE: 2014
